FAERS Safety Report 4472294-8 (Version None)
Quarter: 2004Q4

REPORT INFORMATION
  Report Type: 
  Country: None (occurrence: None)
  Receive Date: 20041007
  Receipt Date: 20040927
  Transmission Date: 20050328
  Serious: No
  Sender: FDA-Public Use
  Company Number: 23165

PATIENT
  Age: 74 Year
  Sex: Female

DRUGS (4)
  1. ALDARA [Suspect]
     Indication: ACTINIC KERATOSIS
     Dosage: (0.5 SACHET, 1 IN 1 WEEK(S), TOPICAL
     Route: 061
     Dates: start: 20040126, end: 20040223
  2. ATENOLOL [Concomitant]
  3. ZESTRIL [Concomitant]
  4. LANOXIN [Concomitant]

REACTIONS (14)
  - APPLICATION SITE DESQUAMATION [None]
  - APPLICATION SITE ERYTHEMA [None]
  - APPLICATION SITE PRURITUS [None]
  - ARTHRALGIA [None]
  - ARTHRITIS [None]
  - ATRIAL FIBRILLATION [None]
  - CHILLS [None]
  - CONDITION AGGRAVATED [None]
  - DERMATITIS EXFOLIATIVE [None]
  - DISEASE RECURRENCE [None]
  - DYSURIA [None]
  - ERYTHEMA [None]
  - HYPERHIDROSIS [None]
  - SELF-MEDICATION [None]
